FAERS Safety Report 14425197 (Version 2)
Quarter: 2018Q1

REPORT INFORMATION
  Report Type: Spontaneous
  Country: FR (occurrence: FR)
  Receive Date: 20180123
  Receipt Date: 20180223
  Transmission Date: 20180509
  Serious: Yes (Hospitalization)
  Sender: FDA-Public Use
  Company Number: FR-TEVA-2018-FR-848065

PATIENT
  Age: 26 Year
  Sex: Female

DRUGS (4)
  1. ERCEFURYL 200 MG, G?LULE [Suspect]
     Active Substance: NIFUROXAZIDE
     Route: 048
     Dates: start: 20170703, end: 20170703
  2. METEOSPASMYL [Suspect]
     Active Substance: ALVERINE CITRATE\DIMETHICONE
     Route: 048
     Dates: start: 20170703, end: 20170703
  3. PARACETAMOL [Suspect]
     Active Substance: ACETAMINOPHEN
     Route: 048
     Dates: start: 20170703, end: 20170703
  4. LORATADINE. [Suspect]
     Active Substance: LORATADINE
     Route: 048
     Dates: start: 20170703, end: 20170703

REACTIONS (2)
  - Loss of consciousness [Recovered/Resolved]
  - Toxicity to various agents [Recovered/Resolved]

NARRATIVE: CASE EVENT DATE: 20170703
